FAERS Safety Report 9269808 (Version 2)
Quarter: 2013Q2

REPORT INFORMATION
  Report Type: Spontaneous
  Country: US (occurrence: US)
  Receive Date: 20130503
  Receipt Date: 20130514
  Transmission Date: 20140414
  Serious: Yes (Other)
  Sender: FDA-Public Use
  Company Number: US-TEVA-401308USA

PATIENT
  Sex: Male

DRUGS (3)
  1. TREANDA [Suspect]
     Indication: LYMPHOMA
     Route: 058
  2. ALLOPURINOL [Suspect]
     Indication: LYMPHOMA
  3. CYTOTOXIN [Concomitant]
     Indication: LYMPHOMA

REACTIONS (2)
  - Vasculitis [Not Recovered/Not Resolved]
  - Skin necrosis [Not Recovered/Not Resolved]
